FAERS Safety Report 24224073 (Version 1)
Quarter: 2024Q3

REPORT INFORMATION
  Report Type: Spontaneous
  Country: US (occurrence: US)
  Receive Date: 20240819
  Receipt Date: 20240819
  Transmission Date: 20241016
  Serious: No
  Sender: PFIZER
  Company Number: US-PFIZER INC-PV202400106233

PATIENT
  Sex: Female

DRUGS (2)
  1. IBRANCE [Suspect]
     Active Substance: PALBOCICLIB
     Dosage: UNK
  2. OFEV [Suspect]
     Active Substance: NINTEDANIB
     Dosage: UNK

REACTIONS (8)
  - Nail discolouration [Unknown]
  - Decreased appetite [Unknown]
  - Nausea [Unknown]
  - Heart rate increased [Unknown]
  - Hypoaesthesia oral [Unknown]
  - Hypoaesthesia [Unknown]
  - Paraesthesia [Unknown]
  - Musculoskeletal chest pain [Unknown]
